FAERS Safety Report 9722088 (Version 1)
Quarter: 2013Q4

REPORT INFORMATION
  Report Type: Report from Study
  Country: US (occurrence: US)
  Receive Date: 20131202
  Receipt Date: 20131202
  Transmission Date: 20140711
  Serious: Yes (Hospitalization, Other)
  Sender: FDA-Public Use
  Company Number: US-BIOGENIDEC-2013BI113840

PATIENT
  Age: 48 Year
  Sex: Male
  Weight: 91 kg

DRUGS (20)
  1. TYSABRI [Suspect]
     Indication: MULTIPLE SCLEROSIS
     Route: 042
     Dates: start: 20090609
  2. TYSABRI [Suspect]
     Indication: MULTIPLE SCLEROSIS
     Route: 042
     Dates: start: 20130723
  3. SEROQUEL [Concomitant]
     Route: 048
  4. VIAGRA [Concomitant]
     Route: 048
  5. POLYETHYLENE GLYCOL [Concomitant]
     Route: 048
  6. ABILIFY [Concomitant]
     Route: 048
  7. CITALOPRAM [Concomitant]
     Route: 048
  8. CHOLECALCIFEROL [Concomitant]
  9. DESIPRAMINE [Concomitant]
     Route: 048
  10. LYRICA [Concomitant]
     Route: 048
  11. ASPIRIN [Concomitant]
     Route: 048
  12. LOSARTAN [Concomitant]
     Route: 048
  13. METOPROLOL [Concomitant]
     Route: 048
  14. TRILEPTAL [Concomitant]
  15. NIASPAN ER [Concomitant]
     Route: 048
  16. TRIAMCINOLONE [Concomitant]
  17. SIMVASTATIN [Concomitant]
     Route: 048
  18. TIZANIDINE [Concomitant]
     Route: 048
  19. BACLOFEN [Concomitant]
     Route: 048
  20. MIRALAX [Concomitant]

REACTIONS (3)
  - Staphylococcal infection [Recovered/Resolved]
  - Bursitis [Recovered/Resolved]
  - Sepsis [Recovered/Resolved]
